FAERS Safety Report 5103604-6 (Version None)
Quarter: 2006Q3

REPORT INFORMATION
  Report Type: 
  Country: None (occurrence: None)
  Receive Date: 20060911
  Receipt Date: 20060911
  Transmission Date: 20061208
  Serious: Yes (Death)
  Sender: FDA-Public Use
  Company Number: None

PATIENT
  Age: 80 Year
  Sex: Male
  Weight: 74.5 kg

DRUGS (1)
  1. HURRICAINE SPRAY   20%       BEUTLICH PHARMACEUTICALS [Suspect]
     Indication: BRONCHOSCOPY
     Dosage: 1 SPRAY
     Dates: start: 20060831, end: 20060831

REACTIONS (2)
  - METHAEMOGLOBINAEMIA [None]
  - MULTI-ORGAN FAILURE [None]
